FAERS Safety Report 25772707 (Version 1)
Quarter: 2025Q3

REPORT INFORMATION
  Report Type: Spontaneous
  Country: US (occurrence: US)
  Receive Date: 20250908
  Receipt Date: 20250908
  Transmission Date: 20251020
  Serious: No
  Sender: CIPLA
  Company Number: US-CIPLA LTD.-2025US00523

PATIENT

DRUGS (1)
  1. DICLOFENAC [Suspect]
     Active Substance: DICLOFENAC
     Indication: Product used for unknown indication
     Dosage: UNK, BID (APPLIED TWICE A DAY)
     Route: 061

REACTIONS (4)
  - Illness [Not Recovered/Not Resolved]
  - Malaise [Unknown]
  - Intentional underdose [Unknown]
  - Wrong technique in product usage process [Unknown]
